FAERS Safety Report 17213753 (Version 3)
Quarter: 2020Q1

REPORT INFORMATION
  Report Type: Spontaneous
  Country: JP (occurrence: JP)
  Receive Date: 20191230
  Receipt Date: 20200306
  Transmission Date: 20200409
  Serious: Yes (Other)
  Sender: FDA-Public Use
  Company Number: JP-PFIZER INC-2019557645

PATIENT
  Age: 83 Year
  Sex: Female
  Weight: 44 kg

DRUGS (8)
  1. ITOROL [Concomitant]
     Active Substance: ISOSORBIDE MONONITRATE
     Indication: ANGINA PECTORIS
     Dosage: 20 MG, 2X/DAY
     Route: 048
  2. ROSUVASTATIN. [Concomitant]
     Active Substance: ROSUVASTATIN
     Indication: DYSLIPIDAEMIA
     Dosage: 2.5 MG, 1X/DAY
     Route: 048
  3. ALENDRONATE [Concomitant]
     Active Substance: ALENDRONATE SODIUM
     Indication: OSTEOPOROSIS
     Dosage: 35 MG, WEEKLY
     Route: 048
  4. XELJANZ [Suspect]
     Active Substance: TOFACITINIB CITRATE
     Indication: RHEUMATOID ARTHRITIS
     Dosage: 5 MG, 2X/DAY
     Route: 048
     Dates: start: 20180524, end: 20191225
  5. PERSANTIN [Concomitant]
     Active Substance: DIPYRIDAMOLE
     Indication: ANGINA PECTORIS
     Dosage: 25 MG, 2X/DAY
     Route: 048
  6. JUVELA N [Concomitant]
     Active Substance: TOCOPHERYL NICOTINATE, D-.ALPHA.
     Indication: DYSLIPIDAEMIA
     Dosage: 200 MG, 2X/DAY
     Route: 048
  7. BENIDIPINE [Concomitant]
     Active Substance: BENIDIPINE
     Indication: HYPERTENSION
     Dosage: 2 MG, 1X/DAY
     Route: 048
  8. EDIROL [Concomitant]
     Active Substance: ELDECALCITOL
     Indication: OSTEOPOROSIS
     Dosage: 0.75 UG, 1X/DAY
     Route: 048
     Dates: end: 20200213

REACTIONS (8)
  - Cell marker increased [Unknown]
  - Deep vein thrombosis [Recovering/Resolving]
  - Blood glucose increased [Unknown]
  - Red blood cell count decreased [Unknown]
  - Blood albumin decreased [Unknown]
  - White blood cell count increased [Unknown]
  - Blood lactate dehydrogenase increased [Unknown]
  - Surfactant protein increased [Unknown]

NARRATIVE: CASE EVENT DATE: 20180627
